FAERS Safety Report 7747094-3 (Version None)
Quarter: 2011Q3

REPORT INFORMATION
  Report Type: 
  Country: None (occurrence: None)
  Receive Date: 20110913
  Receipt Date: 20110912
  Transmission Date: 20111222
  Serious: Yes (Other)
  Sender: FDA-Public Use
  Company Number: MY-PFIZER INC-2011206198

PATIENT
  Age: 7 Year
  Sex: Male

DRUGS (1)
  1. CLINDAMYCIN PHOSPHATE [Suspect]
     Dosage: UNK

REACTIONS (5)
  - ANAPHYLACTIC SHOCK [None]
  - COUGH [None]
  - DYSPNOEA [None]
  - ACCIDENTAL EXPOSURE [None]
  - WHEEZING [None]
